FAERS Safety Report 12290076 (Version 9)
Quarter: 2016Q4

REPORT INFORMATION
  Report Type: Spontaneous
  Country: US (occurrence: US)
  Receive Date: 20160421
  Receipt Date: 20161208
  Transmission Date: 20170207
  Serious: No
  Sender: FDA-Public Use
  Company Number: US-GLAXOSMITHKLINE-US2016GSK049431

PATIENT
  Age: 79 Year
  Sex: Female

DRUGS (5)
  1. TANZEUM [Suspect]
     Active Substance: ALBIGLUTIDE
     Indication: TYPE 2 DIABETES MELLITUS
     Dosage: 30 MG, SINGLE
     Route: 042
     Dates: start: 201601
  2. TANZEUM [Suspect]
     Active Substance: ALBIGLUTIDE
     Dosage: 30 MG, SINGLE
  3. TANZEUM [Suspect]
     Active Substance: ALBIGLUTIDE
     Dosage: 30 MG, WE
     Dates: start: 201602
  4. TANZEUM [Suspect]
     Active Substance: ALBIGLUTIDE
     Dosage: 30 MG, SINGLE
     Route: 042
  5. TANZEUM [Suspect]
     Active Substance: ALBIGLUTIDE
     Dosage: 30 MG, WE
     Route: 042

REACTIONS (12)
  - Fatigue [Unknown]
  - Lethargy [Unknown]
  - Product colour issue [Unknown]
  - Product preparation error [Unknown]
  - Product quality issue [Unknown]
  - Drug dose omission [Unknown]
  - Device use error [Unknown]
  - Underdose [Unknown]
  - Accidental exposure to product [Unknown]
  - Inappropriate schedule of drug administration [Unknown]
  - Somnolence [Unknown]
  - Circumstance or information capable of leading to medication error [Unknown]

NARRATIVE: CASE EVENT DATE: 201606
